FAERS Safety Report 9278986 (Version 1)
Quarter: 2013Q2

REPORT INFORMATION
  Report Type: Spontaneous
  Country: FR (occurrence: FR)
  Receive Date: 20130508
  Receipt Date: 20130508
  Transmission Date: 20140414
  Serious: Yes (Hospitalization)
  Sender: FDA-Public Use
  Company Number: FR-GLAXOSMITHKLINE-B0888963A

PATIENT
  Age: 27 Year
  Sex: Female

DRUGS (8)
  1. CLAVENTIN [Suspect]
     Indication: SEPSIS
     Dosage: 12G PER DAY
     Route: 042
     Dates: start: 20130203, end: 20130228
  2. CANCIDAS [Suspect]
     Indication: SEPSIS
     Route: 042
     Dates: start: 20130203, end: 20130306
  3. GENTAMICINE [Suspect]
     Indication: ENDOCARDITIS
     Route: 042
     Dates: start: 20130304, end: 20130306
  4. AMOXICILLIN SODIUM [Suspect]
     Indication: ENDOCARDITIS
     Route: 042
     Dates: start: 20130304, end: 20130306
  5. TRIFLUCAN [Concomitant]
     Indication: SEPSIS
     Route: 048
     Dates: start: 20130126, end: 20130203
  6. TAZOCILLINE [Concomitant]
     Indication: SEPSIS
     Route: 042
     Dates: start: 20130126, end: 20130203
  7. VANCOMYCIN [Concomitant]
     Indication: PRODUCT USED FOR UNKNOWN INDICATION
     Route: 042
     Dates: start: 20130126, end: 20130203
  8. LOVENOX [Concomitant]
     Indication: PRODUCT USED FOR UNKNOWN INDICATION
     Route: 058

REACTIONS (3)
  - Hepatocellular injury [Recovered/Resolved]
  - Abdominal pain [Recovered/Resolved]
  - Abdominal pain upper [Recovered/Resolved]
